FAERS Safety Report 8205385-6 (Version None)
Quarter: 2012Q1

REPORT INFORMATION
  Report Type: 
  Country: None (occurrence: None)
  Receive Date: 20120313
  Receipt Date: 20120227
  Transmission Date: 20120608
  Serious: Yes (Other)
  Sender: FDA-Public Use
  Company Number: JP-WATSON-2012-03836

PATIENT
  Age: 25 Year
  Sex: Male

DRUGS (2)
  1. GEMCITABINE [Suspect]
     Indication: TRANSITIONAL CELL CARCINOMA
     Dosage: 2 COURSES
  2. CISPLATIN [Suspect]

REACTIONS (2)
  - ANAEMIA [None]
  - GRANULOCYTOPENIA [None]
